FAERS Safety Report 6998610-0 (Version None)
Quarter: 2010Q3

REPORT INFORMATION
  Report Type: 
  Country: None (occurrence: None)
  Receive Date: 20100920
  Receipt Date: 20070925
  Transmission Date: 20110219
  Serious: Yes (Other)
  Sender: FDA-Public Use
  Company Number: US-ASTRAZENECA-2006UW21351

PATIENT
  Age: 478 Month
  Sex: Male
  Weight: 81.7 kg

DRUGS (10)
  1. SEROQUEL [Suspect]
     Indication: SCHIZOPHRENIA
     Dosage: 100 MG - 1200 MG
     Route: 048
     Dates: start: 20030501, end: 20040501
  2. SEROQUEL [Suspect]
     Indication: DRUG WITHDRAWAL SYNDROME
     Dosage: 100 MG - 1200 MG
     Route: 048
     Dates: start: 20030501, end: 20040501
  3. SEROQUEL [Suspect]
     Dosage: STRENGTH - 25 MG, 200 MG.  DOSE 100 - 600 MG
     Route: 048
     Dates: start: 20030508
  4. SEROQUEL [Suspect]
     Dosage: STRENGTH - 25 MG, 200 MG.  DOSE 100 - 600 MG
     Route: 048
     Dates: start: 20030508
  5. CATAPRES [Concomitant]
     Route: 048
     Dates: start: 20030508
  6. WELLBUTRIN SR [Concomitant]
     Dosage: STRENGTH- 150 MG.  DOSE - 150 MG - 300 MG.
     Route: 048
     Dates: start: 20030703
  7. ATIVAN [Concomitant]
     Route: 048
     Dates: start: 20030520
  8. AMBIEN [Concomitant]
     Indication: SLEEP DISORDER
     Route: 048
     Dates: start: 20030521
  9. EFFEXOR XR [Concomitant]
     Dosage: STRENGTH- 75 MG, 150 MG  DOSE- 75- 150 MG DAILY
     Route: 048
     Dates: start: 20030604
  10. BACTRIM [Concomitant]

REACTIONS (3)
  - ABDOMINAL PAIN UPPER [None]
  - HOMICIDAL IDEATION [None]
  - PANCREATITIS [None]
